FAERS Safety Report 5262820-3 (Version None)
Quarter: 2007Q1

REPORT INFORMATION
  Report Type: 
  Country: None (occurrence: None)
  Receive Date: 20070312
  Receipt Date: 20070301
  Transmission Date: 20070707
  Serious: Yes (Death)
  Sender: FDA-Public Use
  Company Number: US-BAXTER-2007BH002747

PATIENT
  Age: 57 Year
  Sex: Female
  Weight: 93 kg

DRUGS (3)
  1. FEIBA VH IMMUNO [Suspect]
     Indication: FACTOR VIII INHIBITION
     Dosage: DOSE UNIT:UNKNOWN
     Route: 065
  2. RECOMBINANT FACTOR VIIA [Suspect]
     Indication: FACTOR VIII INHIBITION
     Dosage: DOSE UNIT:UNKNOWN
     Route: 065
  3. PORCINE FVIII [Suspect]
     Indication: FACTOR VIII INHIBITION
     Dosage: DOSE UNIT:UNKNOWN

REACTIONS (2)
  - DEEP VEIN THROMBOSIS [None]
  - PULMONARY EMBOLISM [None]
